FAERS Safety Report 9296534 (Version 1)
Quarter: 2013Q2

REPORT INFORMATION
  Report Type: Spontaneous
  Country: US (occurrence: US)
  Receive Date: 20130517
  Receipt Date: 20130517
  Transmission Date: 20140414
  Serious: Yes (Hospitalization, Other)
  Sender: FDA-Public Use
  Company Number: US-ELI_LILLY_AND_COMPANY-US201305004159

PATIENT
  Age: 52 Year
  Sex: Male

DRUGS (1)
  1. HUMALOG LISPRO [Suspect]
     Route: 058

REACTIONS (5)
  - Pneumonia [Unknown]
  - Hyperglycaemic unconsciousness [Recovered/Resolved]
  - Pneumonia [Unknown]
  - Blood glucose increased [Recovered/Resolved]
  - Dizziness [Unknown]
